FAERS Safety Report 22383596 (Version 1)
Quarter: 2023Q2

REPORT INFORMATION
  Report Type: Spontaneous
  Country: US (occurrence: None)
  Receive Date: 20230526
  Receipt Date: 20230526
  Transmission Date: 20230722
  Serious: Yes (Death)
  Sender: FDA-Public Use
  Company Number: None

PATIENT
  Age: 78 Year
  Sex: Female
  Weight: 66.22 kg

DRUGS (15)
  1. IMATINIB MESYLATE [Suspect]
     Active Substance: IMATINIB MESYLATE
     Indication: Chronic myeloid leukaemia
     Dosage: FREQUENCY : DAILY;?
     Route: 048
  2. ATPRVASTATIN [Concomitant]
  3. BUSPIRONE [Concomitant]
     Active Substance: BUSPIRONE HYDROCHLORIDE
  4. CARVEDILOL [Concomitant]
  5. CYCLOBENZAPRINE [Concomitant]
     Active Substance: CYCLOBENZAPRINE
  6. ELIQUIS [Concomitant]
     Active Substance: APIXABAN
  7. GABAPENTIN [Concomitant]
     Active Substance: GABAPENTIN
  8. IRON [Concomitant]
  9. MARINOL [Concomitant]
     Active Substance: DRONABINOL
  10. ONDANSETRON [Concomitant]
  11. PERCOCET [Concomitant]
     Active Substance: ACETAMINOPHEN\OXYCODONE HYDROCHLORIDE
  12. PANTOPRAZOLE [Concomitant]
  13. SERTRALINE [Concomitant]
  14. SULFASALAZINE [Concomitant]
     Active Substance: SULFASALAZINE
  15. TRAZODONE [Concomitant]
     Active Substance: TRAZODONE HYDROCHLORIDE

REACTIONS (1)
  - Death [None]
